FAERS Safety Report 9458016 (Version 1)
Quarter: 2013Q3

REPORT INFORMATION
  Report Type: Spontaneous
  Country: US (occurrence: US)
  Receive Date: 20130814
  Receipt Date: 20130814
  Transmission Date: 20140515
  Serious: No
  Sender: FDA-Public Use
  Company Number: US-MYLANLABS-2012S1016780

PATIENT
  Age: 65 Year
  Sex: Male

DRUGS (1)
  1. PENTOXIFYLLINE [Suspect]
     Indication: SKIN ULCER
     Route: 048
     Dates: start: 20120411, end: 2012

REACTIONS (2)
  - Therapeutic response unexpected [Not Recovered/Not Resolved]
  - Abnormal loss of weight [Not Recovered/Not Resolved]
